FAERS Safety Report 8308776-8 (Version None)
Quarter: 2012Q2

REPORT INFORMATION
  Report Type: 
  Country: None (occurrence: None)
  Receive Date: 20120424
  Receipt Date: 20120418
  Transmission Date: 20120825
  Serious: Yes (Other)
  Sender: FDA-Public Use
  Company Number: BR-PFIZER INC-2012097510

PATIENT
  Age: 81 Year
  Sex: Female

DRUGS (9)
  1. SIMVASTATIN [Concomitant]
     Dosage: UNK
     Dates: start: 20100101
  2. CONDROFLEX [Concomitant]
     Dosage: UNK
     Dates: start: 20060101
  3. CLONAZEPAM [Concomitant]
     Dosage: UNK
     Dates: start: 20060101
  4. DAFLON [Concomitant]
     Dosage: UNK
     Dates: start: 20110101
  5. CELEBREX [Suspect]
     Indication: OSTEOARTHRITIS
     Dosage: 200 MG, 2X/DAY (EVERY 12 HOURS)
     Route: 048
  6. LIPITOR [Suspect]
     Indication: BLOOD CHOLESTEROL
     Dosage: UNK
     Route: 048
     Dates: start: 20090101
  7. CELEBREX [Suspect]
     Dosage: 3 CAPSULES EVERY 8 HOURS IF PATIENT HAD STRONG CRISIS
  8. PHENOBARBITAL TAB [Concomitant]
     Dosage: UNK
     Dates: start: 20060101
  9. FOSAMAX [Concomitant]
     Dosage: UNK
     Dates: start: 20090101

REACTIONS (2)
  - OSTEOARTHRITIS [None]
  - BLOOD CHOLESTEROL INCREASED [None]
